FAERS Safety Report 5128547-3 (Version None)
Quarter: 2006Q4

REPORT INFORMATION
  Report Type: 
  Country: None (occurrence: None)
  Receive Date: 20061011
  Receipt Date: 20060925
  Transmission Date: 20070319
  Serious: Yes (Other)
  Sender: FDA-Public Use
  Company Number: 06101877

PATIENT
  Age: 88 Year
  Sex: Male

DRUGS (7)
  1. GATIFLOXACIN [Suspect]
     Indication: PNEUMONIA
     Dosage: ORAL
     Route: 048
  2. WARFARIN SODIUM [Suspect]
     Indication: AORTIC VALVE REPLACEMENT
     Dosage: ORAL
     Route: 048
  3. DIGOXIN [Concomitant]
  4. FUROSEMIDE (FRUSEMIDE) [Concomitant]
  5. NORTRIPTYLINE HCL [Concomitant]
  6. OMEPRAZOLE [Concomitant]
  7. SPIRONOLACTONE [Concomitant]

REACTIONS (3)
  - DRUG INTERACTION [None]
  - INTERNATIONAL NORMALISED RATIO ABNORMAL [None]
  - PROTHROMBIN TIME PROLONGED [None]
